FAERS Safety Report 10576640 (Version 2)
Quarter: 2014Q4

REPORT INFORMATION
  Report Type: Report from Study
  Country: US (occurrence: DE)
  Receive Date: 20141111
  Receipt Date: 20141111
  Transmission Date: 20150529
  Serious: Yes (Other)
  Sender: FDA-Public Use
  Company Number: DE-CELGENE-062-21880-13081658

PATIENT
  Age: 73 Year
  Sex: Male
  Weight: 66 kg

DRUGS (9)
  1. REVLIMID [Suspect]
     Active Substance: LENALIDOMIDE
     Indication: PLASMA CELL MYELOMA
     Route: 048
     Dates: start: 20091128, end: 20091218
  2. DEXAMETHASONE. [Suspect]
     Active Substance: DEXAMETHASONE
     Route: 048
     Dates: start: 20100707, end: 20100728
  3. ZOMETA [Concomitant]
     Active Substance: ZOLEDRONIC ACID
     Indication: PRODUCT USED FOR UNKNOWN INDICATION
     Route: 065
     Dates: end: 20130614
  4. DEXAMETHASONE. [Suspect]
     Active Substance: DEXAMETHASONE
     Route: 041
     Dates: start: 20130517, end: 20130618
  5. CYCLOPHOSPHAMIDE. [Concomitant]
     Active Substance: CYCLOPHOSPHAMIDE
     Indication: PLASMA CELL MYELOMA
     Route: 065
     Dates: start: 20100824, end: 20100824
  6. AMPHOMORONAL [Concomitant]
     Indication: PROPHYLAXIS
     Route: 048
     Dates: start: 20130517, end: 20130621
  7. DEXAMETHASONE. [Suspect]
     Active Substance: DEXAMETHASONE
     Indication: PLASMA CELL MYELOMA
     Route: 048
     Dates: start: 20091128, end: 20091219
  8. REVLIMID [Suspect]
     Active Substance: LENALIDOMIDE
     Dosage: 2.3 MILLIGRAM
     Route: 048
     Dates: start: 20100707, end: 20100727
  9. COTRIM D.S. [Concomitant]
     Active Substance: SULFAMETHOXAZOLE\TRIMETHOPRIM
     Indication: PROPHYLAXIS
     Dosage: 20 MILLILITER
     Route: 048
     Dates: start: 20130517, end: 20130622

REACTIONS (1)
  - Refractory cytopenia with multilineage dysplasia [Not Recovered/Not Resolved]

NARRATIVE: CASE EVENT DATE: 20130313
